FAERS Safety Report 12608783 (Version 3)
Quarter: 2017Q1

REPORT INFORMATION
  Report Type: Spontaneous
  Country: AR (occurrence: AR)
  Receive Date: 20160729
  Receipt Date: 20170203
  Transmission Date: 20170428
  Serious: Yes (Death, Hospitalization, Other)
  Sender: FDA-Public Use
  Company Number: AR-BIOMARINAP-AR-2016-110603

PATIENT
  Age: 18 Month
  Sex: Female

DRUGS (1)
  1. ALDURAZYME [Suspect]
     Active Substance: LARONIDASE
     Indication: MUCOPOLYSACCHARIDOSIS I
     Dosage: UNK
     Route: 041
     Dates: end: 201609

REACTIONS (7)
  - Bradycardia [Unknown]
  - Hypoxia [Unknown]
  - Hypoxic-ischaemic encephalopathy [Unknown]
  - Complications of bone marrow transplant [Fatal]
  - Seizure [Unknown]
  - Respiratory tract infection [Not Recovered/Not Resolved]
  - Acute respiratory failure [Unknown]
